FAERS Safety Report 25048210 (Version 4)
Quarter: 2025Q3

REPORT INFORMATION
  Report Type: Spontaneous
  Country: JP (occurrence: JP)
  Receive Date: 20250306
  Receipt Date: 20250908
  Transmission Date: 20251021
  Serious: Yes (Other)
  Sender: AMGEN
  Company Number: JP-DSJP-DS-2025-127577-

PATIENT
  Age: 70 Year
  Sex: Male

DRUGS (4)
  1. DENOSUMAB [Suspect]
     Active Substance: DENOSUMAB
     Indication: Product used for unknown indication
     Route: 058
  2. DENOSUMAB [Suspect]
     Active Substance: DENOSUMAB
     Route: 058
  3. DENOSUMAB [Suspect]
     Active Substance: DENOSUMAB
     Route: 058
  4. ELDECALCITOL [Concomitant]
     Active Substance: ELDECALCITOL
     Indication: Product used for unknown indication
     Route: 065

REACTIONS (1)
  - Hungry bone syndrome [Recovering/Resolving]
